FAERS Safety Report 12859897 (Version 6)
Quarter: 2022Q4

REPORT INFORMATION
  Report Type: Report from Study
  Country: US (occurrence: US)
  Receive Date: 20161018
  Receipt Date: 20221123
  Transmission Date: 20230113
  Serious: Yes (Death, Hospitalization, Other)
  Sender: FDA-Public Use
  Company Number: US-BOEHRINGERINGELHEIM-2016-BI-066895

PATIENT
  Age: 90 Year
  Sex: Male
  Weight: 70.8 kg

DRUGS (10)
  1. OFEV [Suspect]
     Active Substance: NINTEDANIB
     Indication: Idiopathic pulmonary fibrosis
     Route: 048
     Dates: start: 20150918, end: 20160829
  2. OFEV [Suspect]
     Active Substance: NINTEDANIB
     Route: 048
     Dates: start: 20170213, end: 20170306
  3. ALBUTEROL SULFATE [Concomitant]
     Active Substance: ALBUTEROL SULFATE
     Indication: Wheezing
     Dosage: (2.5 MG/3ML) 0.083% NEBU SOLN, INHALE 3 ML EVERY 4 HOURS AS NEEDED
     Route: 055
  4. ASPIRIN [Concomitant]
     Active Substance: ASPIRIN
     Indication: Product used for unknown indication
     Route: 048
  5. FLUDROCORTISONE ACETATE [Concomitant]
     Active Substance: FLUDROCORTISONE ACETATE
     Indication: Product used for unknown indication
     Route: 048
  6. HYDROCORTISONE [Concomitant]
     Active Substance: HYDROCORTISONE
     Indication: Product used for unknown indication
     Dosage: 10 MG TAB, 2 TABS IN MORNING, 1 TAB IN EVENING
     Route: 065
  7. LATANOPROST [Concomitant]
     Active Substance: LATANOPROST
     Indication: Product used for unknown indication
     Dosage: 0.005 % SOLUTION
     Route: 047
  8. Levothyroxine Sodium (SYNTHROID) [Concomitant]
     Indication: Product used for unknown indication
     Route: 048
  9. MIRTAZAPINE [Concomitant]
     Active Substance: MIRTAZAPINE
     Indication: Product used for unknown indication
     Dosage: 15 MG TAB, HALF TABLET NIGHTLY FOR ONE WEEK AND THEN INCREASE TO ONE TABLET NIGHTLY
     Route: 065
  10. SIMVASTATIN [Concomitant]
     Active Substance: SIMVASTATIN
     Indication: Product used for unknown indication
     Route: 048

REACTIONS (16)
  - Aortic aneurysm [Fatal]
  - Idiopathic pulmonary fibrosis [Recovered/Resolved]
  - Failure to thrive [Recovered/Resolved]
  - Cardiac failure chronic [Recovered/Resolved]
  - Fall [Recovered/Resolved]
  - Dementia [Not Recovered/Not Resolved]
  - Diarrhoea [Recovered/Resolved]
  - Spinal compression fracture [Not Recovered/Not Resolved]
  - Spinal compression fracture [Not Recovered/Not Resolved]
  - Spinal disorder [Not Recovered/Not Resolved]
  - Thrombocytopenia [Not Recovered/Not Resolved]
  - Hallucination [Recovered/Resolved]
  - Decubitus ulcer [Not Recovered/Not Resolved]
  - Decreased appetite [Not Recovered/Not Resolved]
  - Pneumonia [Recovered/Resolved]
  - Fall [Recovered/Resolved]

NARRATIVE: CASE EVENT DATE: 20160725
